FAERS Safety Report 10211171 (Version 1)
Quarter: 2014Q2

REPORT INFORMATION
  Report Type: Report from Study
  Country: US (occurrence: US)
  Receive Date: 20140602
  Receipt Date: 20140602
  Transmission Date: 20141212
  Serious: No
  Sender: FDA-Public Use
  Company Number: US-ABBVIE-13P-163-1167484-00

PATIENT
  Age: 65 Year
  Sex: Female
  Weight: 39.95 kg

DRUGS (1)
  1. MARINOL [Suspect]
     Indication: INCREASED APPETITE
     Dates: start: 201207, end: 201309

REACTIONS (3)
  - Drug dose omission [Not Recovered/Not Resolved]
  - Nausea [Not Recovered/Not Resolved]
  - Weight decreased [Not Recovered/Not Resolved]
